FAERS Safety Report 10038041 (Version 1)
Quarter: 2014Q1

REPORT INFORMATION
  Report Type: Spontaneous
  Country: IR (occurrence: None)
  Receive Date: 20140321
  Receipt Date: 20140321
  Transmission Date: 20141002
  Serious: Yes (Hospitalization)
  Sender: FDA-Public Use
  Company Number: SYM-2014-17003

PATIENT
  Age: 23 Year
  Sex: Female

DRUGS (1)
  1. METRONIDAZOLE [Suspect]
     Indication: BLASTOCYSTIS INFECTION
     Dosage: 750 MG, 3 IN 1 D, ORAL
     Route: 048

REACTIONS (4)
  - Diarrhoea [None]
  - Tinnitus [None]
  - Nervousness [None]
  - Deafness neurosensory [None]
